FAERS Safety Report 15218778 (Version 3)
Quarter: 2018Q3

REPORT INFORMATION
  Report Type: Report from Study
  Country: None (occurrence: US)
  Receive Date: 20180731
  Receipt Date: 20180920
  Transmission Date: 20181010
  Serious: Yes (Other)
  Sender: FDA-Public Use
  Company Number: US-ABBVIE-18K-163-2302776-00

PATIENT
  Age: 62 Year
  Sex: Female

DRUGS (1)
  1. HUMIRA [Suspect]
     Active Substance: ADALIMUMAB
     Indication: CROHN^S DISEASE
     Route: 058

REACTIONS (12)
  - Injection site pain [Unknown]
  - Weight decreased [Recovering/Resolving]
  - Blister [Recovered/Resolved]
  - Therapeutic response shortened [Not Recovered/Not Resolved]
  - Decreased appetite [Recovering/Resolving]
  - Small intestinal obstruction [Unknown]
  - Neoplasm malignant [Recovering/Resolving]
  - Gastrointestinal sounds abnormal [Recovering/Resolving]
  - Gastrointestinal disorder [Recovering/Resolving]
  - Incorrect dose administered [Unknown]
  - Road traffic accident [Unknown]
  - Diarrhoea [Unknown]

NARRATIVE: CASE EVENT DATE: 201709
